FAERS Safety Report 4437978-6 (Version None)
Quarter: 2004Q3

REPORT INFORMATION
  Report Type: 
  Country: None (occurrence: None)
  Receive Date: 20040831
  Receipt Date: 20040825
  Transmission Date: 20050211
  Serious: Yes (Hospitalization)
  Sender: FDA-Public Use
  Company Number: FR-ROCHE-378598

PATIENT
  Sex: Female

DRUGS (1)
  1. APRANAX [Suspect]
     Indication: DRUG USE FOR UNKNOWN INDICATION
     Route: 065

REACTIONS (3)
  - DERMATITIS EXFOLIATIVE [None]
  - SEPSIS [None]
  - STAPHYLOCOCCAL SEPSIS [None]
